FAERS Safety Report 7261998-X (Version None)
Quarter: 2011Q1

REPORT INFORMATION
  Report Type: 
  Country: None (occurrence: None)
  Receive Date: 20110130
  Receipt Date: 20101104
  Transmission Date: 20110831
  Serious: No
  Sender: FDA-Public Use
  Company Number: US-ABBOTT-10P-163-0683358-00

PATIENT
  Age: 54 Year
  Sex: Female

DRUGS (14)
  1. PERPHENAZINE AND AMITRIPTYLINE HCL [Concomitant]
     Indication: ANXIETY
     Dosage: AT BEDTIME
  2. COREG [Concomitant]
     Indication: CARDIAC DISORDER
  3. SPIRIVA [Concomitant]
     Indication: PRODUCT USED FOR UNKNOWN INDICATION
  4. ASPIRIN [Concomitant]
     Indication: CARDIOVASCULAR EVENT PROPHYLAXIS
  5. LISINOPRIL [Concomitant]
     Indication: BLOOD PRESSURE MANAGEMENT
  6. PROTONIX [Concomitant]
     Indication: GASTROOESOPHAGEAL REFLUX DISEASE
  7. HUMIRA [Suspect]
     Indication: CROHN'S DISEASE
     Dates: start: 20100901
  8. COMBIVENT [Concomitant]
     Indication: CHRONIC OBSTRUCTIVE PULMONARY DISEASE
     Dosage: INHALER DAILY AS NEEDED
  9. PERPHENAZINE AND AMITRIPTYLINE HCL [Concomitant]
     Indication: DEPRESSION
  10. LOVASTATIN [Concomitant]
     Indication: CARDIAC DISORDER
  11. LORAZEPAM [Concomitant]
     Indication: INSOMNIA
     Dosage: AT BEDTIME
  12. ADVAIR [Concomitant]
     Indication: PRODUCT USED FOR UNKNOWN INDICATION
     Dosage: 500/50 TWICE DAILY
  13. LISINOPRIL [Concomitant]
     Indication: CARDIOVASCULAR EVENT PROPHYLAXIS
  14. VICODIN [Concomitant]
     Indication: PAIN
     Dosage: EVERY 4 HOURS AS NEEDED

REACTIONS (1)
  - ARTHRALGIA [None]
